FAERS Safety Report 25341681 (Version 3)
Quarter: 2025Q3

REPORT INFORMATION
  Report Type: Spontaneous
  Country: CA (occurrence: CA)
  Receive Date: 20250521
  Receipt Date: 20250702
  Transmission Date: 20251021
  Serious: Yes (Other)
  Sender: VERTEX
  Company Number: CA-VERTEX PHARMACEUTICALS-2025-008056

PATIENT
  Age: 14 Year
  Sex: Male

DRUGS (5)
  1. TRIKAFTA [Suspect]
     Active Substance: ELEXACAFTOR\IVACAFTOR\TEZACAFTOR
     Indication: Cystic fibrosis
     Route: 048
     Dates: start: 20250418, end: 20250424
  2. UNSPECIFIED INGREDIENT [Concomitant]
     Active Substance: UNSPECIFIED INGREDIENT
  3. CREON [Concomitant]
     Active Substance: PANCRELIPASE AMYLASE\PANCRELIPASE LIPASE\PANCRELIPASE PROTEASE
  4. VITAMIN D [Concomitant]
     Active Substance: VITAMIN D NOS
  5. SECOBARBITAL [Concomitant]
     Active Substance: SECOBARBITAL

REACTIONS (8)
  - Chest pain [Recovered/Resolved]
  - Blood alkaline phosphatase increased [Recovering/Resolving]
  - Malnutrition [Unknown]
  - Gamma-glutamyltransferase increased [Recovered/Resolved]
  - Dyspnoea [Recovered/Resolved]
  - Blood alkaline phosphatase decreased [Recovered/Resolved]
  - Alanine aminotransferase increased [Recovered/Resolved]
  - Aspartate aminotransferase increased [Recovered/Resolved]

NARRATIVE: CASE EVENT DATE: 20250401
